FAERS Safety Report 5430417-8 (Version None)
Quarter: 2007Q3

REPORT INFORMATION
  Report Type: 
  Country: None (occurrence: None)
  Receive Date: 20070830
  Receipt Date: 20070821
  Transmission Date: 20080115
  Serious: Yes (Hospitalization, Other)
  Sender: FDA-Public Use
  Company Number: FR-JNJFOC-20070604797

PATIENT
  Age: 65 Year
  Sex: Female
  Weight: 53.5 kg

DRUGS (12)
  1. REMICADE [Suspect]
     Indication: RHEUMATOID ARTHRITIS
     Route: 042
  2. METHOTREXATE [Concomitant]
  3. METHOTREXATE [Concomitant]
  4. METHOTREXATE [Concomitant]
     Indication: RHEUMATOID ARTHRITIS
  5. CORTANCYL [Concomitant]
     Route: 048
  6. POTASSIUM CHLORIDE [Concomitant]
  7. SPECTAFOLDINE [Concomitant]
  8. OROCAL D3 [Concomitant]
  9. DETENSIEL [Concomitant]
  10. OMEPRAZOLE [Concomitant]
  11. CODOLIPRANE [Concomitant]
  12. PARACETAMOL [Concomitant]

REACTIONS (2)
  - BREAST CANCER METASTATIC [None]
  - INFECTION [None]
